FAERS Safety Report 17310587 (Version 1)
Quarter: 2020Q1

REPORT INFORMATION
  Report Type: Spontaneous
  Country: CA (occurrence: CA)
  Receive Date: 20200123
  Receipt Date: 20200123
  Transmission Date: 20200409
  Serious: Yes (Hospitalization, Other)
  Sender: FDA-Public Use
  Company Number: CA-BAUSCH-BL-2020-001247

PATIENT
  Age: 35 Year
  Sex: Female

DRUGS (7)
  1. GENTAMICIN SULFATE. [Suspect]
     Active Substance: GENTAMICIN SULFATE
     Indication: PRODUCT USED FOR UNKNOWN INDICATION
     Route: 065
  2. CEFTRIAXONE SODIUM. [Suspect]
     Active Substance: CEFTRIAXONE SODIUM
     Indication: PRODUCT USED FOR UNKNOWN INDICATION
     Route: 030
  3. CLINDAMYCIN SALT NOT SPECIFIED [Suspect]
     Active Substance: CLINDAMYCIN
     Indication: PRODUCT USED FOR UNKNOWN INDICATION
     Route: 065
  4. FLAGYL [Suspect]
     Active Substance: METRONIDAZOLE\METRONIDAZOLE HYDROCHLORIDE
     Indication: PRODUCT USED FOR UNKNOWN INDICATION
     Route: 065
  5. PRIVIGEN [Suspect]
     Active Substance: HUMAN IMMUNOGLOBULIN G
     Indication: DISSEMINATED INTRAVASCULAR COAGULATION
     Dosage: 80 GRAM, TOTAL, SOLUTION INTRAVENOUS
     Route: 042
  6. FRAGMIN [Concomitant]
     Active Substance: DALTEPARIN SODIUM
     Indication: PRODUCT USED FOR UNKNOWN INDICATION
  7. PRIVIGEN [Suspect]
     Active Substance: HUMAN IMMUNOGLOBULIN G
     Indication: TOXIC SHOCK SYNDROME
     Dosage: 5 G, TOTAL, SOLUTION INTRAVENOUS
     Route: 042

REACTIONS (4)
  - Haemoglobin decreased [Recovered/Resolved with Sequelae]
  - Haemolytic anaemia [Recovered/Resolved with Sequelae]
  - Haemolysis [Recovered/Resolved with Sequelae]
  - Anaemia [Recovered/Resolved with Sequelae]
